FAERS Safety Report 6689348-8 (Version None)
Quarter: 2010Q2

REPORT INFORMATION
  Report Type: 
  Country: None (occurrence: None)
  Receive Date: 20100419
  Receipt Date: 20100419
  Transmission Date: 20101027
  Serious: Yes (Other)
  Sender: FDA-Public Use
  Company Number: None

PATIENT

DRUGS (1)
  1. TWILIGHT TEETH PLATINUM 25 TWILIGHT TEETH ,25% CARBIMIDE PEROXIDE TWIL [Suspect]
     Indication: TOOTH DISCOLOURATION
     Dosage: APPLY TO TEETH DURING TANNING
     Route: 048

REACTIONS (2)
  - ORAL DISORDER [None]
  - PHOTOSENSITIVITY REACTION [None]
